FAERS Safety Report 16250233 (Version 6)
Quarter: 2021Q4

REPORT INFORMATION
  Report Type: Report from Study
  Country: US (occurrence: US)
  Receive Date: 20190429
  Receipt Date: 20211209
  Transmission Date: 20220303
  Serious: Yes (Death, Hospitalization, Other)
  Sender: FDA-Public Use
  Company Number: US-AMGEN-USACT2019065967

PATIENT
  Age: 57 Year
  Sex: Male
  Weight: 103.5 kg

DRUGS (3)
  1. BLINATUMOMAB [Suspect]
     Active Substance: BLINATUMOMAB
     Indication: B precursor type acute leukaemia
     Dosage: UNK (TOTAL DOSE: 651 MG)
     Route: 065
     Dates: start: 20190117
  2. NIVOLUMAB [Suspect]
     Active Substance: NIVOLUMAB
     Indication: B precursor type acute leukaemia
     Dosage: UNK (TOTAL DOSE: 480 MG)
     Route: 065
     Dates: start: 20190127
  3. IPILIMUMAB [Suspect]
     Active Substance: IPILIMUMAB
     Indication: B precursor type acute leukaemia
     Dosage: UNK (TOTAL DOSE: 102 MG)
     Route: 065
     Dates: start: 20190127

REACTIONS (3)
  - Pneumonitis [Fatal]
  - Hypoxia [Not Recovered/Not Resolved]
  - Pneumonitis [Not Recovered/Not Resolved]

NARRATIVE: CASE EVENT DATE: 20190212
